FAERS Safety Report 4705023-0 (Version None)
Quarter: 2005Q3

REPORT INFORMATION
  Report Type: 
  Country: None (occurrence: None)
  Receive Date: 20050701
  Receipt Date: 20050617
  Transmission Date: 20060218
  Serious: Yes (Hospitalization)
  Sender: FDA-Public Use
  Company Number: FR-JNJFOC-20050600034

PATIENT
  Age: 53 Year
  Sex: Female
  Weight: 58 kg

DRUGS (11)
  1. REMICADE [Suspect]
     Dosage: 5TH INFUSION.
     Route: 042
  2. REMICADE [Suspect]
     Indication: VASCULITIS
     Route: 042
  3. REMICADE [Suspect]
     Indication: RHEUMATOID ARTHRITIS
     Route: 042
  4. METHOTREXATE [Concomitant]
     Indication: VASCULITIS
     Route: 065
  5. METHOTREXATE [Concomitant]
     Indication: RHEUMATOID ARTHRITIS
     Route: 065
  6. CORTANCYL [Concomitant]
     Indication: VASCULITIS
     Route: 065
  7. CORTANCYL [Concomitant]
     Indication: RHEUMATOID ARTHRITIS
     Route: 065
  8. ACTONEL [Concomitant]
  9. OROCAL D3 [Concomitant]
  10. OROCAL D3 [Concomitant]
  11. LEXOMIL [Concomitant]

REACTIONS (7)
  - ASTHENIA [None]
  - DIFFICULTY IN WALKING [None]
  - HEADACHE [None]
  - MYALGIA [None]
  - PAIN [None]
  - TYPE IV HYPERSENSITIVITY REACTION [None]
  - VOMITING [None]
